FAERS Safety Report 4390909-X (Version None)
Quarter: 2004Q3

REPORT INFORMATION
  Report Type: 
  Country: None (occurrence: None)
  Receive Date: 20040707
  Receipt Date: 20040630
  Transmission Date: 20050211
  Serious: Yes (Hospitalization)
  Sender: FDA-Public Use
  Company Number: 200414993US

PATIENT
  Sex: Female

DRUGS (1)
  1. BENZACLIN [Suspect]
     Dosage: DOSE: NOT PROVIDED
     Route: 061

REACTIONS (1)
  - HYPERSENSITIVITY [None]
